FAERS Safety Report 5904398-4 (Version None)
Quarter: 2008Q4

REPORT INFORMATION
  Report Type: 
  Country: None (occurrence: None)
  Receive Date: 20081001
  Receipt Date: 20080926
  Transmission Date: 20090506
  Serious: Yes (Life-Threatening, Hospitalization, Other)
  Sender: FDA-Public Use
  Company Number: DE-BRISTOL-MYERS SQUIBB COMPANY-14249171

PATIENT
  Age: 59 Year
  Sex: Male
  Weight: 66 kg

DRUGS (8)
  1. ERBITUX [Suspect]
     Indication: COLON CANCER
     Route: 042
     Dates: start: 20080610
  2. FLUOROURACIL [Suspect]
     Indication: COLON CANCER
     Dosage: 1 DOSAGE FORM= 2000-2400MG/M2.
     Route: 042
     Dates: start: 20080610
  3. IRINOTECAN HCL [Suspect]
     Indication: COLON CANCER
     Route: 042
     Dates: start: 20080610
  4. FORTECORTIN [Suspect]
     Indication: PREMEDICATION
     Dosage: ALSO TAKEN AS PREMEDICATION AS 20MG ON 10JUN08.
     Route: 042
     Dates: start: 20080610, end: 20080610
  5. FORTECORTIN [Suspect]
     Indication: PROPHYLAXIS OF NAUSEA AND VOMITING
     Dosage: ALSO TAKEN AS PREMEDICATION AS 20MG ON 10JUN08.
     Route: 042
     Dates: start: 20080610, end: 20080610
  6. HEPARIN [Suspect]
     Indication: INTRAVENOUS CATHETER MANAGEMENT
     Dosage: 1 DOSAGE FORM = 200 IE/ML
     Route: 042
  7. FENISTIL [Concomitant]
     Indication: PREMEDICATION
     Dosage: 1 DOSAGE FORM=1 AMPULE.
     Dates: start: 20080610, end: 20080610
  8. RANITIDINE [Concomitant]
     Indication: PREMEDICATION
     Dosage: 1 DOSAGE FORM=1 AMPULE.
     Dates: start: 20080610, end: 20080610

REACTIONS (1)
  - THROMBOCYTOPENIA [None]
